FAERS Safety Report 6053313-4 (Version None)
Quarter: 2009Q1

REPORT INFORMATION
  Report Type: 
  Country: None (occurrence: None)
  Receive Date: 20090127
  Receipt Date: 20090120
  Transmission Date: 20090719
  Serious: Yes (Hospitalization)
  Sender: FDA-Public Use
  Company Number: A0765137A

PATIENT
  Age: 34 Year
  Sex: Female

DRUGS (2)
  1. LAMIVUDINE AND ZIDOVUDINE [Suspect]
     Indication: HIV INFECTION
     Dosage: 300MGD PER DAY
     Route: 048
     Dates: start: 20081201
  2. UNKNOWN [Concomitant]

REACTIONS (3)
  - DEHYDRATION [None]
  - DIARRHOEA [None]
  - VOMITING [None]
